FAERS Safety Report 19304344 (Version 3)
Quarter: 2021Q2

REPORT INFORMATION
  Report Type: Spontaneous
  Country: US (occurrence: US)
  Receive Date: 20210526
  Receipt Date: 20210616
  Transmission Date: 20210717
  Serious: Yes (Disabling, Other)
  Sender: FDA-Public Use
  Company Number: US-SA-2021SA169751

PATIENT
  Age: 56 Year
  Sex: Female
  Weight: 71.2 kg

DRUGS (15)
  1. TECFIDERA [Concomitant]
     Active Substance: DIMETHYL FUMARATE
     Dosage: UNK
  2. XARELTO [Concomitant]
     Active Substance: RIVAROXABAN
     Dosage: 20 MG, QD
     Route: 048
  3. VALACYCLOVIR [Concomitant]
     Active Substance: VALACYCLOVIR HYDROCHLORIDE
     Dosage: 500 MG, QD
     Route: 048
  4. VIT D [VITAMIN D NOS] [Concomitant]
     Dosage: UNK
  5. COPAXONE [Concomitant]
     Active Substance: GLATIRAMER ACETATE
     Dosage: UNK
  6. DIPHENHYDRAMINE HCL [Concomitant]
     Active Substance: DIPHENHYDRAMINE HYDROCHLORIDE
     Dosage: 25 MG
     Dates: start: 20210412, end: 20210412
  7. CULTURELLE [Concomitant]
     Active Substance: LACTOBACILLUS RHAMNOSUS
     Dosage: 1 DF, QD
     Route: 048
  8. DEXAMETHASONE SODIUM PHOSPHATE. [Concomitant]
     Active Substance: DEXAMETHASONE SODIUM PHOSPHATE
     Dosage: 10 MG
     Dates: start: 20210412, end: 20210412
  9. METOCLOPRAMIDE HYDROCHLORIDE. [Concomitant]
     Active Substance: METOCLOPRAMIDE HYDROCHLORIDE
     Dosage: 10 MG
     Dates: start: 20210412, end: 20210412
  10. AUBAGIO [Suspect]
     Active Substance: TERIFLUNOMIDE
     Indication: MULTIPLE SCLEROSIS
     Dosage: 7 MG, QD
     Route: 048
     Dates: start: 201903
  11. TAGRISSO [Concomitant]
     Active Substance: OSIMERTINIB
     Dosage: 40 MG, QOD
     Route: 048
  12. DULOXETINE. [Concomitant]
     Active Substance: DULOXETINE
     Dosage: FOR 90 DAYS
     Route: 048
     Dates: start: 20210505
  13. TYSABRI [Concomitant]
     Active Substance: NATALIZUMAB
     Dosage: UNK
     Dates: start: 201405, end: 201806
  14. TAGRISSO [Concomitant]
     Active Substance: OSIMERTINIB
     Route: 048
  15. BUSPIRONE [Concomitant]
     Active Substance: BUSPIRONE HYDROCHLORIDE
     Dosage: 10 MG, BID
     Route: 048
     Dates: start: 20201101

REACTIONS (51)
  - Cough [Recovering/Resolving]
  - Pain [Unknown]
  - Muscle spasticity [Unknown]
  - Mood altered [Unknown]
  - Neoplasm malignant [Unknown]
  - Blindness [Unknown]
  - Blood glucose increased [Unknown]
  - Vitamin D deficiency [Unknown]
  - Vision blurred [Unknown]
  - Emotional distress [Unknown]
  - Lymphocyte count decreased [Unknown]
  - Fatigue [Unknown]
  - Dizziness [Unknown]
  - Hypovitaminosis [Unknown]
  - Dysphagia [Unknown]
  - Ageusia [Not Recovered/Not Resolved]
  - Headache [Unknown]
  - Rash [Unknown]
  - Neuropathy peripheral [Unknown]
  - Stress [Unknown]
  - Sensory loss [Unknown]
  - Fall [Unknown]
  - Sensory disturbance [Unknown]
  - Albumin globulin ratio decreased [Unknown]
  - Parosmia [Unknown]
  - Hypoaesthesia [Unknown]
  - Irritability [Unknown]
  - Depression [Unknown]
  - Malaise [Unknown]
  - Neck pain [Unknown]
  - Central nervous system lesion [Unknown]
  - Adverse drug reaction [Unknown]
  - Neurogenic bladder [Unknown]
  - Multiple sclerosis relapse [Recovered/Resolved]
  - Dyspnoea [Recovering/Resolving]
  - Amnesia [Unknown]
  - Muscular weakness [Unknown]
  - C-reactive protein decreased [Unknown]
  - Lipase decreased [Unknown]
  - Urinary tract infection [Recovered/Resolved]
  - Muscle spasms [Unknown]
  - Neutrophil count increased [Unknown]
  - COVID-19 [Unknown]
  - Nausea [Unknown]
  - Neoplasm [Unknown]
  - Vertigo [Unknown]
  - Feeling abnormal [Unknown]
  - Anxiety [Unknown]
  - Temperature difference of extremities [Unknown]
  - Myocardial infarction [Recovered/Resolved]
  - Fungal infection [Unknown]

NARRATIVE: CASE EVENT DATE: 201904
